FAERS Safety Report 4645105-5 (Version None)
Quarter: 2005Q2

REPORT INFORMATION
  Report Type: 
  Country: None (occurrence: None)
  Receive Date: 20050422
  Receipt Date: 20050412
  Transmission Date: 20051028
  Serious: Yes (Life-Threatening, Hospitalization, Other)
  Sender: FDA-Public Use
  Company Number: 2005046204

PATIENT
  Age: 60 Year
  Sex: Female
  Weight: 58.9676 kg

DRUGS (4)
  1. LIPITOR [Suspect]
     Indication: HYPERCHOLESTEROLAEMIA
     Dosage: 20 MG (20 MG, 1 IN 1 D), ORAL
     Route: 048
  2. FLURBIPROFEN [Suspect]
     Indication: ARTHRITIS
     Dosage: (100 MG), ORAL
     Route: 048
     Dates: end: 20050101
  3. LEVOTHYROXINE SODIUM [Concomitant]
  4. ASPIRIN [Concomitant]

REACTIONS (3)
  - ASTHENIA [None]
  - DUODENAL ULCER HAEMORRHAGE [None]
  - MALAISE [None]
